FAERS Safety Report 4837768-6 (Version None)
Quarter: 2005Q4

REPORT INFORMATION
  Report Type: 
  Country: None (occurrence: None)
  Receive Date: 20051128
  Receipt Date: 20051004
  Transmission Date: 20060501
  Serious: Yes (Hospitalization, Other)
  Sender: FDA-Public Use
  Company Number: US-MERCK-0510USA03165

PATIENT
  Age: 57 Year
  Sex: Male
  Weight: 100 kg

DRUGS (10)
  1. VIOXX [Suspect]
     Indication: ARTHRITIS
     Route: 048
     Dates: start: 19990101, end: 20020521
  2. VIOXX [Suspect]
     Route: 065
     Dates: start: 20031224, end: 20040802
  3. HUMULIN [Concomitant]
     Route: 065
  4. GLYBURIDE [Concomitant]
     Route: 065
  5. CARDURA [Concomitant]
     Route: 065
  6. ZYRTEC [Concomitant]
     Route: 065
  7. FLEXERIL [Concomitant]
     Route: 048
  8. WELLBUTRIN [Concomitant]
     Route: 065
  9. MERIDIA [Concomitant]
     Route: 065
  10. CIPRO [Concomitant]
     Route: 065

REACTIONS (11)
  - ATRIOVENTRICULAR BLOCK FIRST DEGREE [None]
  - BACK DISORDER [None]
  - CAROTID ARTERY DISEASE [None]
  - CHEST DISCOMFORT [None]
  - CORONARY ARTERY OCCLUSION [None]
  - CORONARY ARTERY STENOSIS [None]
  - DYSPNOEA [None]
  - GALLBLADDER DISORDER [None]
  - SILENT MYOCARDIAL INFARCTION [None]
  - VENTRICULAR DYSFUNCTION [None]
  - VENTRICULAR HYPERTROPHY [None]
